FAERS Safety Report 7722937-8 (Version None)
Quarter: 2011Q3

REPORT INFORMATION
  Report Type: 
  Country: None (occurrence: None)
  Receive Date: 20110901
  Receipt Date: 20110826
  Transmission Date: 20111222
  Serious: Yes (Other)
  Sender: FDA-Public Use
  Company Number: US-BAYER-2011-073930

PATIENT
  Age: 59 Year
  Sex: Male

DRUGS (1)
  1. NEXAVAR [Suspect]
     Indication: HEPATIC NEOPLASM MALIGNANT
     Dosage: 400 MG, UNK
     Route: 048
     Dates: start: 20110801

REACTIONS (7)
  - NAUSEA [None]
  - DYSPHONIA [None]
  - HYPERSOMNIA [None]
  - DECREASED APPETITE [None]
  - APHAGIA [None]
  - LETHARGY [None]
  - ABDOMINAL PAIN UPPER [None]
